FAERS Safety Report 8613230-X (Version None)
Quarter: 2012Q3

REPORT INFORMATION
  Report Type: 
  Country: None (occurrence: None)
  Receive Date: 20120822
  Receipt Date: 20120801
  Transmission Date: 20120928
  Serious: Yes (Death)
  Sender: FDA-Public Use
  Company Number: JP-009507513-1204USA02306

PATIENT

DRUGS (29)
  1. MK-0805 [Concomitant]
     Dosage: 40 MG, QD
     Route: 048
     Dates: start: 20120320
  2. GEBEN [Concomitant]
     Dosage: DAILY DOSAGE UNKNOWN
     Route: 061
  3. PURSENNID (SENNA) [Concomitant]
     Dosage: BEFORE IT SLEEPS
     Route: 048
  4. ASPIRIN [Concomitant]
     Route: 048
  5. PLAVIX [Concomitant]
  6. BISOPROLOL FUMARATE [Concomitant]
  7. PURSENNID (SENNOSIDES) [Concomitant]
     Dosage: 24 MG, QD
     Route: 048
  8. GEBEN [Concomitant]
     Dosage: UNK UNK, PRN
     Route: 061
  9. PLAVIX [Concomitant]
     Dosage: 75 MG, QD
     Route: 048
  10. VITAMIN B12 [Concomitant]
     Dosage: 500 ?G, TID
     Route: 048
  11. BASEN OD [Concomitant]
     Dosage: 0.3 MG, TID
     Route: 048
     Dates: start: 20120320
  12. JANUVIA [Suspect]
     Indication: DIABETES MELLITUS
     Route: 048
     Dates: start: 20120402, end: 20120410
  13. FUROSEMIDE [Concomitant]
     Route: 048
     Dates: start: 20120320
  14. LANSOPRAZOLE [Concomitant]
     Dosage: 15 MG, QD
     Route: 048
  15. MERISLON [Concomitant]
     Dosage: 6 MG, TID
     Route: 048
  16. ASPIRIN [Concomitant]
     Dosage: 100 MG, QD
     Route: 048
  17. SEROQUEL [Concomitant]
  18. ALDACTONE [Concomitant]
  19. ADALAT [Concomitant]
     Indication: BLOOD PRESSURE INCREASED
     Dosage: 10 MG, UNK
     Route: 048
  20. ADALAT [Concomitant]
     Dosage: ADMINISTERING AT BLOOD PRESSURE ELEVATION
     Route: 048
  21. AMARYL [Concomitant]
  22. WARFARIN SODIUM [Concomitant]
     Dosage: 3 MG, QD
     Route: 048
  23. JANUVIA [Suspect]
     Indication: DIABETES MELLITUS
     Dosage: 50 MG, QD
     Route: 048
     Dates: start: 20120402, end: 20120410
  24. BISOPROLOL FUMARATE [Concomitant]
     Dosage: 2.5 MG, QD
     Route: 048
  25. AMARYL [Concomitant]
     Dosage: 1 MG, QD
     Route: 048
  26. SEROQUEL [Concomitant]
     Dosage: 25 MG, QD
     Route: 048
  27. ALDACTONE [Concomitant]
     Dosage: 25 MG, QD
     Route: 048
  28. LANSOPRAZOLE [Concomitant]
  29. WARFARIN SODIUM [Concomitant]

REACTIONS (1)
  - INTERSTITIAL LUNG DISEASE [None]
